FAERS Safety Report 24157457 (Version 2)
Quarter: 2024Q3

REPORT INFORMATION
  Report Type: Spontaneous
  Country: PT (occurrence: PT)
  Receive Date: 20240731
  Receipt Date: 20240906
  Transmission Date: 20241017
  Serious: No
  Sender: BAYER
  Company Number: PT-BAYER-2024A107424

PATIENT
  Age: 15 Year
  Sex: Female

DRUGS (10)
  1. VENTAVIS [Suspect]
     Active Substance: ILOPROST
     Indication: Pulmonary arterial hypertension
     Dosage: 5 TIMES DAILY
     Route: 055
     Dates: start: 201909
  2. VENTAVIS [Suspect]
     Active Substance: ILOPROST
     Indication: Pulmonary arterial hypertension
     Dosage: 5 TIMES DAILY
     Dates: start: 202102, end: 202111
  3. SILDENAFIL [Concomitant]
     Active Substance: SILDENAFIL
     Indication: Pulmonary hypertension
     Dosage: 25 MG, TID
     Dates: start: 2018
  4. SILDENAFIL [Concomitant]
     Active Substance: SILDENAFIL
     Indication: Pulmonary hypertension
     Dosage: 50 MG, TID
  5. MACITENTAN [Concomitant]
     Active Substance: MACITENTAN
     Indication: Pulmonary hypertension
     Dosage: 10 MG, QD
     Dates: start: 2018, end: 202104
  6. FUROSEMIDE [Concomitant]
     Active Substance: FUROSEMIDE
     Indication: Diuretic therapy
     Dosage: 20 MG, BID
     Dates: start: 2018
  7. SPIRONOLACTONE [Concomitant]
     Active Substance: SPIRONOLACTONE
     Indication: Diuretic therapy
     Dosage: 25 MG, QD
     Dates: start: 2018
  8. WARFARIN [Concomitant]
     Active Substance: WARFARIN
     Indication: Anticoagulant therapy
  9. SELEXIPAG [Concomitant]
     Active Substance: SELEXIPAG
  10. TREPROSTINIL [Concomitant]
     Active Substance: TREPROSTINIL
     Route: 058

REACTIONS (1)
  - Off label use [None]
